FAERS Safety Report 6705201-5 (Version None)
Quarter: 2010Q2

REPORT INFORMATION
  Report Type: 
  Country: None (occurrence: None)
  Receive Date: 20100430
  Receipt Date: 20100419
  Transmission Date: 20101027
  Serious: Yes (Hospitalization)
  Sender: FDA-Public Use
  Company Number: BE-ELI_LILLY_AND_COMPANY-BE201003000681

PATIENT
  Sex: Male

DRUGS (12)
  1. ZYPREXA [Suspect]
     Indication: PSYCHOTIC DISORDER
     Dosage: 10 MG, UNK
     Route: 048
     Dates: start: 20090921, end: 20091020
  2. ZYPREXA [Suspect]
     Dosage: 10 MG, 2/D
     Route: 048
     Dates: start: 20091021, end: 20091129
  3. ZYPREXA [Suspect]
     Dosage: 10 MG, DAILY (1/D)
     Route: 048
     Dates: start: 20091130, end: 20091213
  4. CLOPIXOL /00876701/ [Concomitant]
     Indication: PSYCHOTIC DISORDER
     Dosage: 60 MG, DAILY (1/D)
     Route: 048
     Dates: start: 20090926, end: 20090101
  5. CLOPIXOL /00876701/ [Concomitant]
     Dosage: 5 MG, DAILY (1/D)
     Route: 048
     Dates: start: 20090101, end: 20091104
  6. ZOLPIDEM [Concomitant]
     Dosage: 10 MG, UNK
     Route: 048
     Dates: start: 20091002, end: 20091004
  7. DOMINAL FORTE [Concomitant]
     Indication: PSYCHOTIC DISORDER
     Dosage: 80 MG, DAILY (1/D)
     Route: 048
     Dates: start: 20091001, end: 20091007
  8. LORMETAZEPAM [Concomitant]
     Dosage: 2 MG, UNK
     Route: 048
     Dates: start: 20091004, end: 20091007
  9. SOLIAN [Concomitant]
     Indication: PSYCHOTIC DISORDER
     Dosage: UNK, UNK
     Dates: end: 20090101
  10. SOLIAN [Concomitant]
     Dosage: 400 MG, DAILY (1/D)
     Dates: start: 20091101
  11. SEROQUEL [Concomitant]
     Indication: PSYCHOTIC DISORDER
     Dosage: 200 MG, DAILY (1/D)
     Route: 048
     Dates: start: 20090920, end: 20090921
  12. LORAZEPAM [Concomitant]
     Dosage: 10 MG, DAILY (1/D)
     Route: 048
     Dates: start: 20090929, end: 20091213

REACTIONS (5)
  - AKATHISIA [None]
  - BLOOD GLUCOSE DECREASED [None]
  - DRUG INTERACTION [None]
  - GAIT DISTURBANCE [None]
  - RESTLESS LEGS SYNDROME [None]
